FAERS Safety Report 5281098-8 (Version None)
Quarter: 2007Q1

REPORT INFORMATION
  Report Type: 
  Country: None (occurrence: None)
  Receive Date: 20070323
  Receipt Date: 20070320
  Transmission Date: 20070707
  Serious: Yes (Disabling)
  Sender: FDA-Public Use
  Company Number: THQ2007A00223

PATIENT
  Age: 36 Year
  Sex: Male

DRUGS (1)
  1. ACTOS [Suspect]
     Indication: DIABETES MELLITUS NON-INSULIN-DEPENDENT
     Dosage: 45 MG (45 MG, 1 IN 1 D) PER ORAL
     Route: 048
     Dates: start: 20070101, end: 20070301

REACTIONS (4)
  - ACCOMMODATION DISORDER [None]
  - MYDRIASIS [None]
  - MYOPIA [None]
  - VISUAL DISTURBANCE [None]
